FAERS Safety Report 10189144 (Version 2)
Quarter: 2014Q2

REPORT INFORMATION
  Report Type: Spontaneous
  Country: US (occurrence: US)
  Receive Date: 20140522
  Receipt Date: 20140619
  Transmission Date: 20141212
  Serious: Yes (Death, Hospitalization, Other)
  Sender: FDA-Public Use
  Company Number: US-BAXTER-2014BAX024649

PATIENT
  Sex: Female

DRUGS (1)
  1. DIANEAL LOW CALCIUM [Suspect]
     Indication: RENAL FAILURE CHRONIC
     Route: 033
     Dates: start: 20130429

REACTIONS (4)
  - Hypotension [Fatal]
  - White blood cell count increased [Recovering/Resolving]
  - Calciphylaxis [Not Recovered/Not Resolved]
  - Skin disorder [Not Recovered/Not Resolved]
